FAERS Safety Report 8177473-4 (Version None)
Quarter: 2012Q1

REPORT INFORMATION
  Report Type: 
  Country: None (occurrence: None)
  Receive Date: 20120301
  Receipt Date: 20120217
  Transmission Date: 20120608
  Serious: Yes (Hospitalization, Disabling)
  Sender: FDA-Public Use
  Company Number: US-ACTELION-A-NJ2012-60874

PATIENT

DRUGS (2)
  1. TRACLEER [Suspect]
     Indication: PULMONARY ARTERIAL HYPERTENSION
     Dosage: UNK
     Route: 048
     Dates: start: 20031202
  2. REMODULIN [Concomitant]

REACTIONS (6)
  - POST PROCEDURAL HAEMORRHAGE [None]
  - CAESAREAN SECTION [None]
  - CLOSTRIDIAL INFECTION [None]
  - PREGNANCY [None]
  - HYSTERECTOMY [None]
  - DIARRHOEA [None]
